FAERS Safety Report 7256330-1 (Version None)
Quarter: 2011Q1

REPORT INFORMATION
  Report Type: 
  Country: None (occurrence: None)
  Receive Date: 20110129
  Receipt Date: 20100506
  Transmission Date: 20110831
  Serious: No
  Sender: FDA-Public Use
  Company Number: US-ABBOTT-10P-163-0639847-00

PATIENT
  Sex: Female

DRUGS (4)
  1. EXFORGE [Concomitant]
     Indication: PRODUCT USED FOR UNKNOWN INDICATION
  2. MERCAPTOPURINE [Concomitant]
     Indication: PRODUCT USED FOR UNKNOWN INDICATION
  3. HUMIRA [Suspect]
     Indication: COLITIS ULCERATIVE
     Route: 058
     Dates: start: 20100322, end: 20100406
  4. PREDNISONE [Concomitant]
     Indication: PRODUCT USED FOR UNKNOWN INDICATION
     Dosage: TITRATED

REACTIONS (6)
  - PRODUCTIVE COUGH [None]
  - TENDONITIS [None]
  - UPPER RESPIRATORY TRACT INFECTION [None]
  - LUPUS-LIKE SYNDROME [None]
  - SERUM SICKNESS [None]
  - OEDEMA PERIPHERAL [None]
